FAERS Safety Report 15430687 (Version 1)
Quarter: 2018Q3

REPORT INFORMATION
  Report Type: Spontaneous
  Country: US (occurrence: US)
  Receive Date: 20180926
  Receipt Date: 20180926
  Transmission Date: 20181010
  Serious: No
  Sender: FDA-Public Use
  Company Number: US-TAKEDA-2018TUS028017

PATIENT
  Sex: Male
  Weight: 36.28 kg

DRUGS (1)
  1. ENTYVIO [Suspect]
     Active Substance: VEDOLIZUMAB
     Indication: COLITIS
     Dosage: 300 MG, UNK
     Route: 042
     Dates: start: 2016

REACTIONS (2)
  - Drug administered to patient of inappropriate age [Unknown]
  - Drug level decreased [Unknown]

NARRATIVE: CASE EVENT DATE: 2016
